FAERS Safety Report 14133097 (Version 1)
Quarter: 2017Q4

REPORT INFORMATION
  Report Type: Spontaneous
  Country: US (occurrence: US)
  Receive Date: 20171026
  Receipt Date: 20171026
  Transmission Date: 20180321
  Serious: Yes (Hospitalization, Other)
  Sender: FDA-Public Use
  Company Number: None

PATIENT
  Age: 17 Year
  Sex: Female

DRUGS (1)
  1. NEXPLANON [Suspect]
     Active Substance: ETONOGESTREL
     Indication: CONTRACEPTION
     Dosage: ?          OTHER FREQUENCY:IMPLANT;OTHER ROUTE:IMPLANT BY DOCTOR?

REACTIONS (4)
  - Headache [None]
  - VIth nerve paralysis [None]
  - Intracranial pressure increased [None]
  - Pain [None]

NARRATIVE: CASE EVENT DATE: 20170531
